FAERS Safety Report 5299001-3 (Version None)
Quarter: 2007Q2

REPORT INFORMATION
  Report Type: 
  Country: None (occurrence: None)
  Receive Date: 20070402
  Receipt Date: 20070309
  Transmission Date: 20071010
  Serious: Yes (Other)
  Sender: FDA-Public Use
  Company Number: THYM-11380

PATIENT
  Sex: Female

DRUGS (1)
  1. THYMOGLOBULIN [Suspect]
     Indication: PANCREAS TRANSPLANT

REACTIONS (2)
  - LYMPHOCYTE COUNT DECREASED [None]
  - PANCREAS TRANSPLANT REJECTION [None]
